FAERS Safety Report 24314255 (Version 1)
Quarter: 2024Q3

REPORT INFORMATION
  Report Type: Report from Study
  Country: ZA (occurrence: ZA)
  Receive Date: 20240912
  Receipt Date: 20240912
  Transmission Date: 20241016
  Serious: Yes (Hospitalization)
  Sender: ABBVIE
  Company Number: ZA-ABBOTT-2024A-1387562

PATIENT
  Sex: Female

DRUGS (11)
  1. CREON [Suspect]
     Active Substance: PANCRELIPASE AMYLASE\PANCRELIPASE LIPASE\PANCRELIPASE PROTEASE
     Indication: Pancreatic failure
     Dosage: 300 MG TAKE TWO CAPSULES WITH BIG MEALS, 25000
     Route: 048
  2. KANTREXIL [Concomitant]
     Indication: Product used for unknown indication
     Dosage: TAKE TWO TABLETS THREE TIMES A DAY,
     Route: 048
  3. Omiflux [Concomitant]
     Indication: Ulcer
     Dosage: 20 MG TAKE ONE TABLET EVERY DAY
     Route: 048
  4. SIMVASTATIN [Concomitant]
     Active Substance: SIMVASTATIN
     Indication: Blood cholesterol
     Dosage: 10 MG TAKE ONE TABLET DAILY
     Route: 048
  5. ASPIRIN [Concomitant]
     Active Substance: ASPIRIN
     Indication: Blood disorder prophylaxis
     Dosage: 100 MG TAKE ONE TABLET DAILY
     Route: 048
  6. PHENERGAN [Concomitant]
     Active Substance: PROMETHAZINE HYDROCHLORIDE
     Indication: Product used for unknown indication
     Dosage: 25 MG TAKE ONE TABLET AT NIGHT
     Route: 048
  7. METFORMIN HYDROCHLORIDE [Concomitant]
     Active Substance: METFORMIN HYDROCHLORIDE
     Indication: Diabetes mellitus
     Dosage: 500 MG TAKE ONE TABLET TWICE A DAY
     Route: 048
  8. ENTIRO [Concomitant]
     Indication: Product used for unknown indication
     Dosage: TAKE ONE CAPSULE DAILY
     Route: 048
  9. Synaleve [Concomitant]
     Indication: Pain
     Dosage: TAKE ONE CAPSULE AFTER MEALS THREE TIMES A DAY
     Route: 048
  10. INFLUVAC [Suspect]
     Active Substance: INFLUENZA VIRUS VACCINE TRIVALENT TYPE A+B
     Indication: Product used for unknown indication
     Dosage: INJECT AS DIRECTED
     Route: 030
  11. GLICLAZIDE [Concomitant]
     Active Substance: GLICLAZIDE
     Indication: Diabetes mellitus
     Dosage: 30 MG TAKE ONE TABLET DAILY, MR
     Route: 048

REACTIONS (2)
  - Pancreatic disorder [Recovered/Resolved]
  - Jaundice [Recovered/Resolved]
